FAERS Safety Report 24704548 (Version 2)
Quarter: 2024Q4

REPORT INFORMATION
  Report Type: Report from Study
  Country: US (occurrence: US)
  Receive Date: 20241206
  Receipt Date: 20241213
  Transmission Date: 20250114
  Serious: Yes (Other)
  Sender: TAIHO ONCOLOGY INC
  Company Number: US-OTSUKA-2023_028830

PATIENT
  Age: 75 Year
  Sex: Male
  Weight: 71 kg

DRUGS (6)
  1. INQOVI [Suspect]
     Active Substance: CEDAZURIDINE\DECITABINE
     Indication: Myelodysplastic syndrome
     Dosage: 1 DF (35 MG DECITABINE AND 100 MG CEDAZURIDINE), QD (FOR 5 DAYS) THEN 23 DAYS OFF (CYCLE 1, 13)
     Route: 048
     Dates: start: 20231023
  2. INQOVI [Suspect]
     Active Substance: CEDAZURIDINE\DECITABINE
     Dosage: 1 DF (35 MG DECITABINE AND 100 MG CEDAZURIDINE) DAILY FOR 5 DAYS OF 28 DAY CYCLE (CYCLE 7)
     Route: 048
  3. DOXYCYCLINE [Concomitant]
     Active Substance: DOXYCYCLINE
     Indication: Product used for unknown indication
     Dosage: 100 MG, BID (FOR 30 DAYS)?DAILY DOSE: 200 MILLIGRAM(S)
     Route: 065
  4. ACYCLOVIR [Concomitant]
     Active Substance: ACYCLOVIR
     Indication: Product used for unknown indication
     Dosage: 400 MG, QD?DAILY DOSE: 400 MILLIGRAM(S)
     Route: 065
  5. KETOCONAZOLE [Concomitant]
     Active Substance: KETOCONAZOLE
     Indication: Product used for unknown indication
     Dosage: 200 MG, QD?DAILY DOSE: 200 MILLIGRAM(S)
     Route: 065
  6. LANSOPRAZOLE [Concomitant]
     Active Substance: LANSOPRAZOLE
     Indication: Product used for unknown indication
     Dosage: 30 MG, QD?DAILY DOSE: 30 MILLIGRAM(S)
     Route: 065

REACTIONS (9)
  - Surgery [Not Recovered/Not Resolved]
  - Taste disorder [Unknown]
  - Muscular weakness [Unknown]
  - Constipation [Unknown]
  - Dizziness [Unknown]
  - Fatigue [Unknown]
  - Inappropriate schedule of product administration [Unknown]
  - Decreased appetite [Unknown]
  - Sleep disorder [Unknown]
